FAERS Safety Report 7275830-1 (Version None)
Quarter: 2011Q1

REPORT INFORMATION
  Report Type: 
  Country: None (occurrence: None)
  Receive Date: 20110204
  Receipt Date: 20110203
  Transmission Date: 20110831
  Serious: Yes (Death, Other)
  Sender: FDA-Public Use
  Company Number: FR-ABBOTT-11P-056-0702272-00

PATIENT
  Age: 20 Month
  Sex: Male

DRUGS (22)
  1. SIMULECT [Suspect]
     Indication: PROPHYLAXIS
     Route: 042
     Dates: start: 20101223, end: 20101223
  2. SEVOFLURANE [Suspect]
     Indication: ANAESTHESIA
     Route: 055
     Dates: start: 20101223, end: 20101223
  3. SUFENTA PRESERVATIVE FREE [Suspect]
     Indication: ANAESTHESIA
     Route: 042
     Dates: start: 20101223, end: 20101223
  4. CELLCEPT [Suspect]
     Indication: PRODUCT USED FOR UNKNOWN INDICATION
     Route: 042
     Dates: start: 20101223, end: 20101224
  5. VENTOLIN [Suspect]
     Indication: PRODUCT USED FOR UNKNOWN INDICATION
     Dates: start: 20101223, end: 20101223
  6. MORPHINE [Suspect]
     Indication: PRODUCT USED FOR UNKNOWN INDICATION
     Dosage: 31 MCG/KG/H
     Route: 042
     Dates: start: 20101223
  7. SOLU-MEDROL [Suspect]
     Indication: PRODUCT USED FOR UNKNOWN INDICATION
     Route: 042
     Dates: start: 20101223, end: 20101223
  8. ATROPINE [Suspect]
     Indication: PRODUCT USED FOR UNKNOWN INDICATION
     Route: 042
     Dates: start: 20101223, end: 20101223
  9. ADRENALINE [Suspect]
     Indication: PRODUCT USED FOR UNKNOWN INDICATION
     Route: 042
     Dates: start: 20101223, end: 20101223
  10. CALCIPARINE [Suspect]
     Indication: PRODUCT USED FOR UNKNOWN INDICATION
     Route: 058
     Dates: start: 20101223, end: 20101223
  11. FLAGYL [Suspect]
     Indication: PRODUCT USED FOR UNKNOWN INDICATION
     Route: 042
     Dates: start: 20101224, end: 20101224
  12. PERFALGAN [Suspect]
     Indication: PRODUCT USED FOR UNKNOWN INDICATION
     Route: 042
     Dates: start: 20101223, end: 20101224
  13. BACTRIM [Suspect]
     Indication: PRODUCT USED FOR UNKNOWN INDICATION
     Route: 042
     Dates: start: 20101223
  14. KETAMINE [Suspect]
     Indication: PRODUCT USED FOR UNKNOWN INDICATION
     Route: 042
     Dates: start: 20101224, end: 20101224
  15. LASIX [Suspect]
     Indication: PRODUCT USED FOR UNKNOWN INDICATION
     Route: 042
     Dates: start: 20101223, end: 20101223
  16. COROTROPE [Suspect]
     Indication: PRODUCT USED FOR UNKNOWN INDICATION
     Dosage: 0.4 MCG/KG/MIN
     Route: 042
     Dates: start: 20101224
  17. HYPNOVEL [Suspect]
     Indication: ANAESTHESIA
     Dosage: 200MCG/KG/H
     Route: 042
     Dates: start: 20101223, end: 20101223
  18. TRACRIUM [Suspect]
     Indication: PRODUCT USED FOR UNKNOWN INDICATION
     Route: 042
     Dates: start: 20101223, end: 20101223
  19. NORADRENALINE [Suspect]
     Indication: PRODUCT USED FOR UNKNOWN INDICATION
     Dates: start: 20101223, end: 20101223
  20. ROCEPHIN [Suspect]
     Indication: PRODUCT USED FOR UNKNOWN INDICATION
     Dosage: 500 MG/2 ML
     Route: 030
     Dates: start: 20101223
  21. VIALEBEX [Suspect]
     Indication: PRODUCT USED FOR UNKNOWN INDICATION
     Route: 042
     Dates: start: 20101223, end: 20101224
  22. NEXIUM [Suspect]
     Indication: PRODUCT USED FOR UNKNOWN INDICATION
     Route: 042
     Dates: start: 20101223, end: 20101223

REACTIONS (22)
  - PLEURAL EFFUSION [None]
  - BRADYCARDIA [None]
  - PALLOR [None]
  - HAEMODYNAMIC INSTABILITY [None]
  - AGITATION [None]
  - HYPOXIA [None]
  - ARRHYTHMIA [None]
  - SPLENOMEGALY [None]
  - AGITATION POSTOPERATIVE [None]
  - TACHYPNOEA [None]
  - ELECTROCARDIOGRAM QRS COMPLEX PROLONGED [None]
  - BRONCHIAL DISORDER [None]
  - CARDIAC FAILURE [None]
  - RESPIRATORY FAILURE [None]
  - OXYGEN SUPPLEMENTATION [None]
  - EJECTION FRACTION DECREASED [None]
  - ACUTE PULMONARY OEDEMA [None]
  - LEFT VENTRICULAR DYSFUNCTION [None]
  - OXYGEN SATURATION DECREASED [None]
  - LUNG DISORDER [None]
  - INCREASED BRONCHIAL SECRETION [None]
  - HYPERTHERMIA [None]
